FAERS Safety Report 7469452-7 (Version None)
Quarter: 2011Q2

REPORT INFORMATION
  Report Type: 
  Country: None (occurrence: None)
  Receive Date: 20110429
  Receipt Date: 20110420
  Transmission Date: 20111010
  Serious: Yes (Life-Threatening)
  Sender: FDA-Public Use
  Company Number: FR-1184921

PATIENT
  Age: 30 Month
  Sex: Female
  Weight: 13.9 kg

DRUGS (3)
  1. CILOXAN [Suspect]
     Indication: CONJUNCTIVITIS
     Dosage: (OPTHALMIC)
     Route: 047
     Dates: start: 20110120, end: 20110121
  2. CEFPODOXIME PROXETIL [Suspect]
     Indication: FEBRILE INFECTION
     Dosage: (2 DF ORAL)
     Route: 048
     Dates: start: 20110121, end: 20110122
  3. ALGOTROPYL (ALGOTROPYL) (BOTTU LABS.) [Suspect]
     Indication: PYREXIA
     Dosage: (RECTAL)
     Route: 054
     Dates: start: 20110120, end: 20110124

REACTIONS (16)
  - NEPHROTIC SYNDROME [None]
  - DECREASED APPETITE [None]
  - MOOD ALTERED [None]
  - LIP DRY [None]
  - RED BLOOD CELL SCHISTOCYTES PRESENT [None]
  - EOSINOPHILIA [None]
  - HAEMOLYTIC ANAEMIA [None]
  - VOMITING [None]
  - HAEMOLYTIC URAEMIC SYNDROME [None]
  - PURPURA [None]
  - ANISOCYTOSIS [None]
  - THROMBOCYTOPENIA [None]
  - ADENOVIRUS TEST POSITIVE [None]
  - ESCHERICHIA TEST POSITIVE [None]
  - HEART RATE INCREASED [None]
  - POIKILOCYTOSIS [None]
